FAERS Safety Report 8611128-4 (Version None)
Quarter: 2012Q3

REPORT INFORMATION
  Report Type: 
  Country: None (occurrence: None)
  Receive Date: 20120808
  Receipt Date: 20120726
  Transmission Date: 20120928
  Serious: Yes (Hospitalization)
  Sender: FDA-Public Use
  Company Number: MPS1-1000167

PATIENT
  Age: 16 Year
  Sex: Male
  Weight: 60 kg

DRUGS (3)
  1. ALDURAZYME [Suspect]
     Indication: MUCOPOLYSACCHARIDOSIS I
     Dosage: 3.19 MG, 1X.W; 34.8 MG
     Dates: start: 20011025
  2. ALDURAZYME [Suspect]
     Indication: MUCOPOLYSACCHARIDOSIS I
     Dosage: 3.19 MG, 1X.W; 34.8 MG
     Dates: end: 20120608
  3. LAMICTAL [Concomitant]

REACTIONS (5)
  - CARDIAC VALVE DISEASE [None]
  - DEVICE MALFUNCTION [None]
  - POOR VENOUS ACCESS [None]
  - HYDROCEPHALUS [None]
  - DEVICE RELATED SEPSIS [None]
